FAERS Safety Report 5006066-2 (Version None)
Quarter: 2006Q1

REPORT INFORMATION
  Report Type: 
  Country: None (occurrence: None)
  Receive Date: 20060328
  Receipt Date: 20060116
  Transmission Date: 20060701
  Serious: No
  Sender: FDA-Public Use
  Company Number: 05P-163-0313291-00

PATIENT
  Age: 48 Year
  Sex: Male

DRUGS (6)
  1. HUMIRA [Suspect]
     Indication: PSORIATIC ARTHROPATHY
     Dosage: 40 MG, SUBCUTANEOUS
     Route: 058
     Dates: start: 20030508, end: 20050301
  2. HUMIRA [Suspect]
     Indication: RHEUMATOID ARTHRITIS
     Dosage: 40 MG, SUBCUTANEOUS
     Route: 058
     Dates: start: 20030508, end: 20050301
  3. FUROSEMIDE [Concomitant]
  4. PIROXICAM [Concomitant]
  5. INSULIN GLARGINE [Concomitant]
  6. ASPIRIN TAB [Concomitant]

REACTIONS (1)
  - LYMPHOMA [None]
